FAERS Safety Report 5569712-0 (Version None)
Quarter: 2007Q4

REPORT INFORMATION
  Report Type: 
  Country: None (occurrence: None)
  Receive Date: 20071220
  Receipt Date: 20071217
  Transmission Date: 20080405
  Serious: Yes (Other)
  Sender: FDA-Public Use
  Company Number: GB-BOEHRINGER INGELHEIM PHARMACEUTICALS, INC.-2007-UK-04097UK

PATIENT
  Sex: Female

DRUGS (2)
  1. DIPYRIDAMOLE [Suspect]
  2. MOTILIUM [Suspect]

REACTIONS (1)
  - SYSTEMIC LUPUS ERYTHEMATOSUS [None]
